FAERS Safety Report 10145075 (Version 2)
Quarter: 2014Q3

REPORT INFORMATION
  Report Type: Spontaneous
  Country: IT (occurrence: IT)
  Receive Date: 20140501
  Receipt Date: 20140718
  Transmission Date: 20150326
  Serious: Yes (Hospitalization)
  Sender: FDA-Public Use
  Company Number: IT-ROCHE-1387556

PATIENT
  Age: 72 Year
  Sex: Female

DRUGS (3)
  1. SOLDESAM [Concomitant]
     Active Substance: DEXAMETHASONE
     Route: 048
     Dates: start: 20131208, end: 20131208
  2. RIVOTRIL [Suspect]
     Active Substance: CLONAZEPAM
     Indication: PRODUCT USED FOR UNKNOWN INDICATION
     Route: 048
     Dates: start: 20131208, end: 20131208
  3. SINTROM [Concomitant]
     Active Substance: ACENOCOUMAROL
     Route: 048

REACTIONS (4)
  - Vertigo [Recovered/Resolved]
  - Confusional state [Recovered/Resolved]
  - Neurological symptom [Recovered/Resolved]
  - Drug administration error [Unknown]

NARRATIVE: CASE EVENT DATE: 20131208
